FAERS Safety Report 5236491-6 (Version None)
Quarter: 2007Q1

REPORT INFORMATION
  Report Type: 
  Country: None (occurrence: None)
  Receive Date: 20061208
  Receipt Date: 20060612
  Transmission Date: 20070707
  Serious: Yes (Other)
  Sender: FDA-Public Use
  Company Number: 2006UW12584

PATIENT
  Age: 68 Year
  Sex: Female
  Weight: 86.182 kg

DRUGS (5)
  1. CRESTOR [Suspect]
     Indication: BLOOD CHOLESTEROL INCREASED
     Dosage: 5 MG PO
     Route: 048
     Dates: start: 20060501
  2. CATAFLAM [Concomitant]
  3. VERAPAMIL [Concomitant]
  4. LIBENAZAPRIL [Concomitant]
  5. NASAL INHALER [Concomitant]

REACTIONS (4)
  - DIARRHOEA [None]
  - FEELING HOT [None]
  - NAUSEA [None]
  - PRURITUS [None]
